FAERS Safety Report 10162324 (Version 1)
Quarter: 2014Q2

REPORT INFORMATION
  Report Type: Spontaneous
  Country: US (occurrence: US)
  Receive Date: 20140509
  Receipt Date: 20140509
  Transmission Date: 20141212
  Serious: Yes (Hospitalization)
  Sender: FDA-Public Use
  Company Number: US-NOVOPROD-409064

PATIENT
  Age: 84 Year
  Sex: Male
  Weight: 82.09 kg

DRUGS (1)
  1. NOVOLOG FLEXPEN [Suspect]
     Indication: TYPE 2 DIABETES MELLITUS
     Dosage: 35 UNITS WITH BREAKFAST, 20 UNITS WITH LUNCH, 35 UNITS WITH DINNER
     Route: 058
     Dates: start: 201304

REACTIONS (3)
  - Localised infection [Recovered/Resolved]
  - Blood glucose decreased [Recovered/Resolved]
  - Blood glucose increased [Recovered/Resolved]
